FAERS Safety Report 5747872-6 (Version None)
Quarter: 2008Q2

REPORT INFORMATION
  Report Type: 
  Country: None (occurrence: None)
  Receive Date: 20080523
  Receipt Date: 20080516
  Transmission Date: 20081010
  Serious: Yes (Hospitalization, Disabling, Other)
  Sender: FDA-Public Use
  Company Number: GB-MERCK-0805GBR00095

PATIENT
  Age: 88 Year
  Sex: Male

DRUGS (6)
  1. FOSAMAX [Suspect]
     Indication: OSTEOPOROSIS
     Route: 048
     Dates: end: 20080414
  2. CALCIUM CARBONATE AND CHOLECALCIFEROL [Concomitant]
     Indication: OSTEOPOROSIS
     Route: 048
  3. ASPIRIN [Concomitant]
     Indication: CARDIOVASCULAR EVENT PROPHYLAXIS
     Route: 048
  4. BISOPROLOL [Concomitant]
     Indication: PAROXYSMAL ARRHYTHMIA
     Route: 048
  5. TOLTERODINE TARTRATE [Concomitant]
     Route: 048
     Dates: end: 20080414
  6. OMEPRAZOLE [Concomitant]
     Indication: ANAEMIA
     Route: 048

REACTIONS (5)
  - BENIGN OESOPHAGEAL NEOPLASM [None]
  - DEHYDRATION [None]
  - OESOPHAGEAL STENOSIS [None]
  - VOMITING [None]
  - WEIGHT DECREASED [None]
